FAERS Safety Report 7674675-8 (Version None)
Quarter: 2011Q3

REPORT INFORMATION
  Report Type: 
  Country: None (occurrence: None)
  Receive Date: 20110810
  Receipt Date: 20110726
  Transmission Date: 20111222
  Serious: Yes (Death, Hospitalization)
  Sender: FDA-Public Use
  Company Number: US-GLAXOSMITHKLINE-A0849348A

PATIENT
  Age: 56 Year
  Sex: Male
  Weight: 88.6 kg

DRUGS (2)
  1. AVANDIA [Suspect]
     Indication: DIABETES MELLITUS
     Dosage: 8MG PER DAY
     Route: 048
     Dates: start: 20040101, end: 20070801
  2. AVANDARYL [Suspect]
     Indication: DIABETES MELLITUS
     Route: 048
     Dates: start: 20070101, end: 20070801

REACTIONS (4)
  - BLADDER CANCER STAGE IV [None]
  - PROSTATE CANCER [None]
  - DEPRESSION [None]
  - CEREBROVASCULAR ACCIDENT [None]
